FAERS Safety Report 5272758-3 (Version None)
Quarter: 2007Q1

REPORT INFORMATION
  Report Type: 
  Country: None (occurrence: None)
  Receive Date: 20070322
  Receipt Date: 20070319
  Transmission Date: 20070707
  Serious: Yes (Hospitalization)
  Sender: FDA-Public Use
  Company Number: US-GLAXOSMITHKLINE-A0644148A

PATIENT
  Age: 75 Year
  Sex: Male

DRUGS (2)
  1. COREG [Suspect]
     Indication: HYPERTENSION
     Route: 048
     Dates: start: 20030101
  2. DIGOXIN [Concomitant]

REACTIONS (4)
  - BRADYCARDIA [None]
  - CARDIAC FAILURE [None]
  - DRUG INEFFECTIVE [None]
  - OEDEMA [None]
